FAERS Safety Report 18171457 (Version 1)
Quarter: 2020Q3

REPORT INFORMATION
  Report Type: Report from Study
  Country: US (occurrence: US)
  Receive Date: 20200819
  Receipt Date: 20200819
  Transmission Date: 20201103
  Serious: No
  Sender: FDA-Public Use
  Company Number: NVSC2020US224012

PATIENT
  Sex: Female

DRUGS (1)
  1. PROMACTA [Suspect]
     Active Substance: ELTROMBOPAG OLAMINE
     Indication: PRODUCT USED FOR UNKNOWN INDICATION
     Route: 048

REACTIONS (7)
  - Decreased appetite [Unknown]
  - Diarrhoea [Unknown]
  - Asthenia [Unknown]
  - Weight decreased [Unknown]
  - Fatigue [Unknown]
  - Dry skin [Unknown]
  - Nausea [Unknown]
